FAERS Safety Report 9652870 (Version 4)
Quarter: 2013Q4

REPORT INFORMATION
  Report Type: Report from Study
  Country: IL (occurrence: IL)
  Receive Date: 20131029
  Receipt Date: 20131223
  Transmission Date: 20140711
  Serious: Yes (Hospitalization)
  Sender: FDA-Public Use
  Company Number: IL-ROCHE-1289600

PATIENT
  Age: 44 Year
  Sex: Male
  Weight: 74.8 kg

DRUGS (1)
  1. VEMURAFENIB [Suspect]
     Indication: MALIGNANT MELANOMA
     Dosage: MOST RECENT DOSE PRIOR TO SAE WAS ON 09/OCT/2013.
     Route: 048
     Dates: start: 20130701

REACTIONS (1)
  - Pericarditis [Not Recovered/Not Resolved]
